FAERS Safety Report 6903593-5 (Version None)
Quarter: 2010Q3

REPORT INFORMATION
  Report Type: 
  Country: None (occurrence: None)
  Receive Date: 20100803
  Receipt Date: 20081024
  Transmission Date: 20110219
  Serious: Yes (Other)
  Sender: FDA-Public Use
  Company Number: US-PFIZER INC-2008083061

PATIENT
  Sex: Female
  Weight: 83 kg

DRUGS (11)
  1. LYRICA [Suspect]
     Indication: FIBROMYALGIA
     Route: 048
     Dates: start: 20080816
  2. REMICADE [Concomitant]
     Indication: RHEUMATOID ARTHRITIS
  3. CELEBREX [Concomitant]
     Indication: RHEUMATOID ARTHRITIS
  4. MICARDIS [Concomitant]
  5. LEVOTHYROXINE [Concomitant]
  6. METFORMIN HCL [Concomitant]
  7. GLIMEPIRIDE [Concomitant]
  8. SPIRONOLACTONE [Concomitant]
  9. INSULIN DETEMIR [Concomitant]
  10. TIMOPTIC [Concomitant]
     Indication: GLAUCOMA
  11. XALATAN [Concomitant]
     Indication: GLAUCOMA

REACTIONS (7)
  - ARTHRALGIA [None]
  - FLUID RETENTION [None]
  - INCREASED APPETITE [None]
  - JOINT SWELLING [None]
  - OEDEMA PERIPHERAL [None]
  - PAIN IN EXTREMITY [None]
  - WEIGHT INCREASED [None]
